FAERS Safety Report 15458144 (Version 1)
Quarter: 2018Q4

REPORT INFORMATION
  Report Type: Spontaneous
  Country: JP (occurrence: JP)
  Receive Date: 20181003
  Receipt Date: 20181003
  Transmission Date: 20190204
  Serious: Yes (Other)
  Sender: FDA-Public Use
  Company Number: JP-TEVA-2018-JP-001471J

PATIENT
  Age: 9 Decade
  Sex: Female

DRUGS (5)
  1. 5MG.ALINAMIN-F SUGAR-COATED TABLETS [Suspect]
     Active Substance: FURSULTIAMINE HYDROCHLORIDE
     Indication: PRODUCT USED FOR UNKNOWN INDICATION
     Route: 048
  2. DOGMATYL [Concomitant]
     Active Substance: SULPIRIDE
     Route: 048
  3. BIOFERMIN [Concomitant]
     Active Substance: BACILLUS SUBTILIS\LACTOBACILLUS ACIDOPHILUS\STREPTOCOCCUS FAECAIS
     Route: 048
  4. EURODIN 1MG. TABLETS [Suspect]
     Active Substance: ESTAZOLAM
     Indication: PRODUCT USED FOR UNKNOWN INDICATION
     Route: 048
  5. EURODIN 1MG. TABLETS [Suspect]
     Active Substance: ESTAZOLAM
     Dosage: 1 MILLIGRAM DAILY;
     Route: 048

REACTIONS (3)
  - Cystitis [Unknown]
  - Altered state of consciousness [Unknown]
  - Pollakiuria [Recovered/Resolved]

NARRATIVE: CASE EVENT DATE: 2018
